FAERS Safety Report 6932170-5 (Version None)
Quarter: 2010Q3

REPORT INFORMATION
  Report Type: 
  Country: None (occurrence: None)
  Receive Date: 20100819
  Receipt Date: 20100812
  Transmission Date: 20110219
  Serious: Yes (Life-Threatening)
  Sender: FDA-Public Use
  Company Number: B0669628A

PATIENT
  Sex: Female

DRUGS (2)
  1. CEFUROXIME [Suspect]
     Indication: CHRONIC SINUSITIS
     Route: 065
  2. OMEPRAZOLE [Concomitant]
     Route: 065

REACTIONS (9)
  - ABDOMINAL PAIN [None]
  - ANAPHYLACTIC SHOCK [None]
  - DIARRHOEA [None]
  - ERYTHEMA [None]
  - HYPOTENSION [None]
  - PRURITUS [None]
  - TONGUE PRURITUS [None]
  - URTICARIA [None]
  - VOMITING [None]
